FAERS Safety Report 23921370 (Version 1)
Quarter: 2024Q2

REPORT INFORMATION
  Report Type: Spontaneous
  Country: US (occurrence: None)
  Receive Date: 20240530
  Receipt Date: 20240530
  Transmission Date: 20240716
  Serious: No
  Sender: FDA-Public Use
  Company Number: None

PATIENT
  Age: 88 Year
  Sex: Male
  Weight: 63.5 kg

DRUGS (7)
  1. MEMANTINE HCL [Suspect]
     Active Substance: MEMANTINE HYDROCHLORIDE
     Indication: Memory impairment
     Dosage: 1 ONCE DAILY MOUTH??THERAPY DATES UNREADBLE ?
     Route: 048
     Dates: start: 202404, end: 202404
  2. LISINOPRIL [Concomitant]
     Active Substance: LISINOPRIL
  3. LEVOTHYROXINE [Concomitant]
     Active Substance: LEVOTHYROXINE\LEVOTHYROXINE SODIUM
  4. PRAVASTATIN [Concomitant]
     Active Substance: PRAVASTATIN
  5. ALIVE VITAMINS [Concomitant]
  6. DIGESTIVE ADVANTAGE PROBIOTICS [Concomitant]
  7. QUNOL MEGA COQ10 [Concomitant]

REACTIONS (1)
  - Blindness transient [None]

NARRATIVE: CASE EVENT DATE: 20240406
